FAERS Safety Report 13395970 (Version 1)
Quarter: 2017Q2

REPORT INFORMATION
  Report Type: Spontaneous
  Country: FR (occurrence: FR)
  Receive Date: 20170403
  Receipt Date: 20170403
  Transmission Date: 20170830
  Serious: Yes (Hospitalization)
  Sender: FDA-Public Use
  Company Number: FR-JNJFOC-20170332130

PATIENT
  Age: 63 Year
  Sex: Male

DRUGS (6)
  1. LOXAPAC [Suspect]
     Active Substance: LOXAPINE SUCCINATE
     Indication: AGITATION
     Route: 048
     Dates: start: 20161225, end: 20161225
  2. HALDOL [Suspect]
     Active Substance: HALOPERIDOL
     Indication: AGITATION
     Route: 048
     Dates: start: 20170113, end: 20170117
  3. PYRIMETHAMINE W/SULFADOXINE [Suspect]
     Active Substance: PYRIMETHAMINE\SULFADOXINE
     Indication: PRODUCT USED FOR UNKNOWN INDICATION
     Route: 065
     Dates: start: 20161229
  4. VALIUM [Suspect]
     Active Substance: DIAZEPAM
     Indication: PRODUCT USED FOR UNKNOWN INDICATION
     Route: 065
     Dates: start: 20161226
  5. TIAPRIDAL [Suspect]
     Active Substance: TIAPRIDE HYDROCHLORIDE
     Indication: AGITATION
     Route: 048
     Dates: start: 20161226, end: 20170113
  6. ADIAZINE [Suspect]
     Active Substance: SULFADIAZINE
     Indication: PRODUCT USED FOR UNKNOWN INDICATION
     Route: 065
     Dates: start: 20161229, end: 20170112

REACTIONS (4)
  - Neuroleptic malignant syndrome [Recovered/Resolved]
  - Septic shock [Recovered/Resolved]
  - Off label use [Unknown]
  - Product use in unapproved indication [Unknown]

NARRATIVE: CASE EVENT DATE: 20170113
